FAERS Safety Report 4856049-8 (Version None)
Quarter: 2005Q4

REPORT INFORMATION
  Report Type: 
  Country: None (occurrence: None)
  Receive Date: 20051216
  Receipt Date: 20051116
  Transmission Date: 20060501
  Serious: Yes (Hospitalization)
  Sender: FDA-Public Use
  Company Number: FR-AVENTIS-200513766FR

PATIENT
  Age: 43 Year
  Sex: Female

DRUGS (2)
  1. ARAVA [Suspect]
     Indication: POLYARTHRITIS
     Route: 048
     Dates: start: 20000101, end: 20050922
  2. BASDENE [Suspect]
     Indication: HYPOTHYROIDISM
     Route: 048
     Dates: start: 20040101, end: 20050927

REACTIONS (1)
  - SKIN NECROSIS [None]
